FAERS Safety Report 18486684 (Version 1)
Quarter: 2020Q4

REPORT INFORMATION
  Report Type: Spontaneous
  Country: US (occurrence: US)
  Receive Date: 20201109
  Receipt Date: 20201109
  Transmission Date: 20210114
  Serious: Yes (Other)
  Sender: FDA-Public Use
  Company Number: None

PATIENT
  Sex: Female

DRUGS (1)
  1. PROGESTE CREAM NATURAL [Suspect]
     Active Substance: PROGESTERONE
     Indication: MENOPAUSE
     Route: 067
     Dates: start: 20201005, end: 20201014

REACTIONS (2)
  - Product use complaint [None]
  - Product origin unknown [None]

NARRATIVE: CASE EVENT DATE: 20201019
